FAERS Safety Report 25234793 (Version 2)
Quarter: 2025Q2

REPORT INFORMATION
  Report Type: Spontaneous
  Country: US (occurrence: US)
  Receive Date: 20250424
  Receipt Date: 20250513
  Transmission Date: 20250716
  Serious: Yes (Congenital Anomaly, Other)
  Sender: FRESENIUS KABI
  Company Number: US-FreseniusKabi-FK202505840

PATIENT
  Age: 78 Year
  Sex: Male
  Weight: 94.8 kg

DRUGS (1)
  1. PROTAMINE SULFATE [Suspect]
     Active Substance: PROTAMINE SULFATE
     Indication: Procoagulant therapy
     Dates: start: 20250416

REACTIONS (2)
  - Pulmonary hypertension [Recovering/Resolving]
  - Hypotension [Recovering/Resolving]

NARRATIVE: CASE EVENT DATE: 20250416
